FAERS Safety Report 13839607 (Version 1)
Quarter: 2017Q3

REPORT INFORMATION
  Report Type: Spontaneous
  Country: US (occurrence: US)
  Receive Date: 20170805
  Receipt Date: 20170805
  Transmission Date: 20171127
  Serious: No
  Sender: FDA-Public Use
  Company Number: None

PATIENT
  Age: 61 Year
  Sex: Male

DRUGS (12)
  1. ACETAMINOPHEN. [Concomitant]
     Active Substance: ACETAMINOPHEN
  2. BLINATUMOMAB [Suspect]
     Active Substance: BLINATUMOMAB
     Indication: NEOPLASM MALIGNANT
     Dosage: 9 MCG CONTINUOUS IV
     Route: 042
     Dates: start: 20161012
  3. METOPROLOL. [Concomitant]
     Active Substance: METOPROLOL
  4. VANCOMYCIN [Concomitant]
     Active Substance: VANCOMYCIN
  5. DEXAMETHASONE. [Concomitant]
     Active Substance: DEXAMETHASONE
  6. HYDROMORPHONE [Concomitant]
     Active Substance: HYDROMORPHONE
  7. MAGNESIUM SULFATE. [Concomitant]
     Active Substance: MAGNESIUM SULFATE
  8. METOPROLOL TARTRATE. [Concomitant]
     Active Substance: METOPROLOL TARTRATE
  9. CALCIUM CARBONATE/VITAMIN D [Concomitant]
     Active Substance: CALCIUM CARBONATE\VITAMIN D
  10. OXYCODONE [Concomitant]
     Active Substance: OXYCODONE
  11. POTASSIUM CHLORIDE. [Concomitant]
     Active Substance: POTASSIUM CHLORIDE
  12. MEROPENEM. [Concomitant]
     Active Substance: MEROPENEM

REACTIONS (3)
  - Pneumonia [None]
  - Endocarditis [None]
  - Bacteraemia [None]

NARRATIVE: CASE EVENT DATE: 20161017
